FAERS Safety Report 7217748-6 (Version None)
Quarter: 2011Q1

REPORT INFORMATION
  Report Type: 
  Country: None (occurrence: None)
  Receive Date: 20110110
  Receipt Date: 20110103
  Transmission Date: 20110831
  Serious: Yes (Other)
  Sender: FDA-Public Use
  Company Number: US-ELI_LILLY_AND_COMPANY-US201101000242

PATIENT
  Sex: Female
  Weight: 76.19 kg

DRUGS (5)
  1. LISINOPRIL [Concomitant]
     Indication: PRODUCT USED FOR UNKNOWN INDICATION
     Dosage: 20 MG, DAILY (1/D)
     Route: 048
  2. AVAPRO [Concomitant]
     Indication: PRODUCT USED FOR UNKNOWN INDICATION
     Route: 048
  3. CRESTOR [Concomitant]
     Indication: PRODUCT USED FOR UNKNOWN INDICATION
     Dosage: 20 MG, DAILY (1/D)
     Route: 048
  4. ACTOPLUS MET [Concomitant]
     Indication: TYPE 2 DIABETES MELLITUS
     Dosage: UNK, 2/D
     Route: 048
  5. BYETTA [Suspect]
     Indication: TYPE 2 DIABETES MELLITUS
     Dosage: 5 UG, 2/D
     Route: 058
     Dates: end: 20101227

REACTIONS (3)
  - INJECTION SITE PRURITUS [None]
  - INJECTION SITE SWELLING [None]
  - BREAST CANCER [None]
